FAERS Safety Report 4591559-2 (Version None)
Quarter: 2005Q1

REPORT INFORMATION
  Report Type: 
  Country: None (occurrence: None)
  Receive Date: 20050222
  Receipt Date: 20050208
  Transmission Date: 20050727
  Serious: Yes (Other)
  Sender: FDA-Public Use
  Company Number: 2005027537

PATIENT
  Age: 48 Year
  Sex: Female

DRUGS (1)
  1. CELEBREX [Suspect]
     Indication: ARTHRITIS
     Dosage: UNK (200 MG, UNKNOWN) UNKNOWN
     Route: 065
     Dates: start: 20040501, end: 20040101

REACTIONS (2)
  - CARDIAC DISORDER [None]
  - CARTILAGE INJURY [None]
